FAERS Safety Report 8608039 (Version 2)
Quarter: 2013Q3

REPORT INFORMATION
  Report Type: Spontaneous
  Country: US (occurrence: US)
  Receive Date: 20120611
  Receipt Date: 20130702
  Transmission Date: 20140515
  Serious: Yes (Disabling)
  Sender: FDA-Public Use
  Company Number: US-ASTRAZENECA-2012SE35356

PATIENT
  Age: 20 Year
  Sex: Female
  Weight: 108.9 kg

DRUGS (6)
  1. NEXIUM [Suspect]
     Indication: GASTROOESOPHAGEAL REFLUX DISEASE
     Route: 048
     Dates: start: 1994
  2. PRILOSEC [Suspect]
     Route: 048
  3. PREVACID [Concomitant]
  4. PROTONIC [Concomitant]
  5. ZANTAC [Concomitant]
  6. ALKA SELTZER [Concomitant]

REACTIONS (6)
  - Fibromyalgia [Unknown]
  - Osteoporosis [Unknown]
  - Multiple fractures [Unknown]
  - Arthropathy [Unknown]
  - Vitamin D deficiency [Unknown]
  - Depression [Unknown]
